FAERS Safety Report 8566128-X (Version None)
Quarter: 2012Q3

REPORT INFORMATION
  Report Type: 
  Country: None (occurrence: None)
  Receive Date: 20120803
  Receipt Date: 20111017
  Transmission Date: 20120928
  Serious: No
  Sender: FDA-Public Use
  Company Number: US-ABBOTT-11P-163-0866176-00

PATIENT
  Sex: Male
  Weight: 83.082 kg

DRUGS (1)
  1. NIASPAN [Suspect]
     Indication: BLOOD TRIGLYCERIDES INCREASED
     Route: 048
     Dates: start: 20060831, end: 20060902

REACTIONS (3)
  - PRURITUS [None]
  - NERVOUSNESS [None]
  - HYPERHIDROSIS [None]
